FAERS Safety Report 4559159-8 (Version None)
Quarter: 2005Q1

REPORT INFORMATION
  Report Type: 
  Country: None (occurrence: None)
  Receive Date: 20050120
  Receipt Date: 20050120
  Transmission Date: 20050727
  Serious: Yes (Hospitalization, Other)
  Sender: FDA-Public Use
  Company Number: None

PATIENT

DRUGS (1)
  1. METOPROLOL TARTRATE [Suspect]
     Indication: HYPERTENSION
     Dosage: 150 MG PO BID
     Route: 048

REACTIONS (6)
  - BRADYCARDIA [None]
  - CONDUCTION DISORDER [None]
  - ELECTROCARDIOGRAM ABNORMAL [None]
  - FALL [None]
  - OVERDOSE [None]
  - SYNCOPE [None]
